FAERS Safety Report 13899412 (Version 1)
Quarter: 2017Q3

REPORT INFORMATION
  Report Type: Spontaneous
  Country: CO (occurrence: CO)
  Receive Date: 20170824
  Receipt Date: 20170824
  Transmission Date: 20171127
  Serious: Yes (Other)
  Sender: FDA-Public Use
  Company Number: CO-PFIZER INC-2017319376

PATIENT
  Sex: Female

DRUGS (1)
  1. GENOTROPIN [Suspect]
     Active Substance: SOMATROPIN
     Indication: GROWTH RETARDATION
     Dosage: UNK
     Route: 058

REACTIONS (2)
  - Feeling abnormal [Unknown]
  - Hypothalamo-pituitary disorder [Not Recovered/Not Resolved]

NARRATIVE: CASE EVENT DATE: 201702
